FAERS Safety Report 7946868-3 (Version None)
Quarter: 2011Q4

REPORT INFORMATION
  Report Type: 
  Country: None (occurrence: None)
  Receive Date: 20111129
  Receipt Date: 20111122
  Transmission Date: 20120403
  Serious: Yes (Other)
  Sender: FDA-Public Use
  Company Number: PHEH2011US01403

PATIENT
  Sex: Female
  Weight: 49 kg

DRUGS (4)
  1. GLEEVEC [Suspect]
     Dosage: 400 MG, DAILY
     Route: 048
     Dates: start: 20110620, end: 20110823
  2. GLEEVEC [Suspect]
     Dosage: 300 MG, UNK
     Route: 048
     Dates: start: 20110609
  3. SYNTHROID [Concomitant]
     Indication: HYPOTHYROIDISM
     Dosage: 100 MG, DAILY
     Route: 048
  4. GLEEVEC [Suspect]
     Indication: GASTROINTESTINAL STROMAL TUMOUR
     Dosage: 400 MG, DAILY
     Route: 048
     Dates: start: 20110609

REACTIONS (10)
  - EYE SWELLING [None]
  - JOINT SWELLING [None]
  - RASH ERYTHEMATOUS [None]
  - OEDEMA PERIPHERAL [None]
  - EPIGASTRIC DISCOMFORT [None]
  - PRURITUS [None]
  - FEELING ABNORMAL [None]
  - DRY SKIN [None]
  - SKIN EXFOLIATION [None]
  - SWELLING FACE [None]
